FAERS Safety Report 24648389 (Version 3)
Quarter: 2024Q4

REPORT INFORMATION
  Report Type: Report from Study
  Country: NL (occurrence: NL)
  Receive Date: 20241121
  Receipt Date: 20241219
  Transmission Date: 20250114
  Serious: Yes (Other)
  Sender: ABBVIE
  Company Number: NL-ABBVIE-6005362

PATIENT
  Age: 63 Year
  Sex: Male

DRUGS (6)
  1. FOSCARBIDOPA\FOSLEVODOPA [Suspect]
     Active Substance: FOSCARBIDOPA\FOSLEVODOPA
     Indication: Parkinson^s disease
     Dosage: REMAINS AT 24 HOURS.?LAST ADMIN DATE 2024
     Route: 058
     Dates: start: 20241028
  2. FOSCARBIDOPA\FOSLEVODOPA [Suspect]
     Active Substance: FOSCARBIDOPA\FOSLEVODOPA
     Dosage: LD: 1.20 ML, BIR: 0.30ML/H, HIR: 0.30ML/H, LIR: 0.20ML/H, TLD:6.20ML; ED: 0.10ML, REMAINS AT 24 H...
     Route: 058
     Dates: start: 20241111, end: 20241113
  3. FOSCARBIDOPA\FOSLEVODOPA [Suspect]
     Active Substance: FOSCARBIDOPA\FOSLEVODOPA
     Dosage: LD: 1.20 ML, BIR: 0.30ML/H, HIR: 0.30ML/H, LIR: 0.23ML/H, ED: 0.10ML, REMAINS AT 24 HOURS
     Route: 058
     Dates: start: 20241113, end: 20241114
  4. FOSCARBIDOPA\FOSLEVODOPA [Suspect]
     Active Substance: FOSCARBIDOPA\FOSLEVODOPA
     Dosage: LD: 1.20 ML, BIR: 0.35ML/H, HIR: 0.35ML/H, LIR: 0.28ML/H, TLD:7.84ML, ED: 0.15ML, REMAINS AT 24 H...
     Route: 058
     Dates: start: 20241114, end: 20241118
  5. FOSCARBIDOPA\FOSLEVODOPA [Suspect]
     Active Substance: FOSCARBIDOPA\FOSLEVODOPA
     Dosage: LD: 1.20 ML, BIR: 0.45ML/H, HIR: 0.45ML/H, LIR: 0.36ML/H, TLD:9.90ML, ED: 0.25ML?REMAINS AT 24 HOURS
     Route: 058
     Dates: start: 20241118
  6. ROPINIROLE [Concomitant]
     Active Substance: ROPINIROLE
     Indication: Parkinson^s disease
     Dosage: 2 PIECES
     Route: 048

REACTIONS (28)
  - Apathy [Not Recovered/Not Resolved]
  - Bradykinesia [Not Recovered/Not Resolved]
  - Product administration error [Not Recovered/Not Resolved]
  - Dystonia [Not Recovered/Not Resolved]
  - Reduced facial expression [Not Recovered/Not Resolved]
  - Dyskinesia [Recovered/Resolved]
  - Limb discomfort [Recovering/Resolving]
  - Depressed level of consciousness [Recovering/Resolving]
  - Tremor [Not Recovered/Not Resolved]
  - Muscle rigidity [Not Recovered/Not Resolved]
  - Mobility decreased [Not Recovered/Not Resolved]
  - On and off phenomenon [Not Recovered/Not Resolved]
  - Speech disorder [Recovering/Resolving]
  - Catheter site related reaction [Not Recovered/Not Resolved]
  - Underdose [Not Recovered/Not Resolved]
  - Confusional state [Not Recovered/Not Resolved]
  - Catheter site bruise [Not Recovered/Not Resolved]
  - Infusion site reaction [Not Recovered/Not Resolved]
  - Therapeutic product effect incomplete [Not Recovered/Not Resolved]
  - Mobility decreased [Not Recovered/Not Resolved]
  - Nocturia [Not Recovered/Not Resolved]
  - Dry mouth [Not Recovered/Not Resolved]
  - Device use issue [Not Recovered/Not Resolved]
  - Feeling abnormal [Not Recovered/Not Resolved]
  - Device difficult to use [Not Recovered/Not Resolved]
  - Loss of personal independence in daily activities [Not Recovered/Not Resolved]
  - Infusion site induration [Not Recovered/Not Resolved]
  - Infusion site bruising [Not Recovered/Not Resolved]

NARRATIVE: CASE EVENT DATE: 20240101
